FAERS Safety Report 4731583-X (Version None)
Quarter: 2005Q3

REPORT INFORMATION
  Report Type: 
  Country: None (occurrence: None)
  Receive Date: 20050722
  Receipt Date: 20050330
  Transmission Date: 20060218
  Serious: Yes (Other)
  Sender: FDA-Public Use
  Company Number: USA-2005-0019588

PATIENT
  Age: 61 Year
  Sex: Female

DRUGS (6)
  1. PALLADONE [Suspect]
     Indication: PAIN
     Dosage: 12 MG, DAILY
     Dates: start: 20050322, end: 20050330
  2. AVINZA [Suspect]
     Indication: PAIN
     Dosage: 60 MG, BID
  3. COLACE CAPSULES [Concomitant]
  4. SENOKOT [Concomitant]
  5. ATIVAN [Concomitant]
  6. TRAZODONE [Concomitant]

REACTIONS (8)
  - CRYING [None]
  - DRUG ABUSER [None]
  - DRUG WITHDRAWAL SYNDROME [None]
  - DYSARTHRIA [None]
  - FEELING HOT AND COLD [None]
  - HEADACHE [None]
  - INSOMNIA [None]
  - OVERDOSE [None]
